FAERS Safety Report 9707796 (Version 1)
Quarter: 2013Q4

REPORT INFORMATION
  Report Type: Spontaneous
  Country: JP (occurrence: JP)
  Receive Date: 20131125
  Receipt Date: 20131125
  Transmission Date: 20140711
  Serious: Yes (Other)
  Sender: FDA-Public Use
  Company Number: JP-ASTELLAS-2013JP012944

PATIENT
  Age: 72 Year
  Sex: Male

DRUGS (1)
  1. FUNGUARD [Suspect]
     Dosage: UNK
     Route: 042
     Dates: start: 20131113, end: 20131113

REACTIONS (2)
  - Injection site induration [Recovered/Resolved]
  - Infusion site extravasation [Unknown]
